FAERS Safety Report 7012706-9 (Version None)
Quarter: 2010Q3

REPORT INFORMATION
  Report Type: 
  Country: None (occurrence: None)
  Receive Date: 20100922
  Receipt Date: 20100909
  Transmission Date: 20110219
  Serious: Yes (Hospitalization)
  Sender: FDA-Public Use
  Company Number: UTC-001424

PATIENT
  Age: 33 Year
  Sex: Female
  Weight: 50 kg

DRUGS (3)
  1. REMODULIN [Suspect]
     Dosage: 46.08 UG/KG (0.032 UG/KG,L IN 1 MIN),SUBCUTANEOUS
     Route: 058
     Dates: start: 20100204
  2. LETAIRIS (AMBRISENTAN) [Concomitant]
  3. LASIX [Concomitant]

REACTIONS (1)
  - INFUSION SITE ABSCESS [None]
